FAERS Safety Report 6732988-8 (Version None)
Quarter: 2010Q2

REPORT INFORMATION
  Report Type: 
  Country: None (occurrence: None)
  Receive Date: 20100519
  Receipt Date: 20100517
  Transmission Date: 20101027
  Serious: Yes (Hospitalization)
  Sender: FDA-Public Use
  Company Number: ES-MERCK-1005ESP00036

PATIENT
  Age: 76 Year
  Sex: Female

DRUGS (6)
  1. ZETIA [Suspect]
     Indication: HYPERLIPIDAEMIA
     Route: 048
     Dates: start: 20090101
  2. ATORVASTATIN [Suspect]
     Indication: HYPERLIPIDAEMIA
     Route: 048
     Dates: start: 20100201, end: 20100322
  3. NICARDIPINE HYDROCHLORIDE [Concomitant]
     Route: 065
  4. NOVO-NORM [Concomitant]
     Route: 048
  5. OMEPRAZOLE [Concomitant]
     Route: 065
  6. CANDESARTAN [Concomitant]
     Route: 065

REACTIONS (2)
  - DRUG INTERACTION [None]
  - RHABDOMYOLYSIS [None]
